FAERS Safety Report 12770997 (Version 1)
Quarter: 2016Q3

REPORT INFORMATION
  Report Type: Spontaneous
  Country: US (occurrence: US)
  Receive Date: 20160922
  Receipt Date: 20160922
  Transmission Date: 20161109
  Serious: No
  Sender: FDA-Public Use
  Company Number: US-LPDUSPRD-20160400

PATIENT
  Sex: Female

DRUGS (1)
  1. BETAMETHASONE SODIUM PHOSPHATE AND BETAMETHASONE ACETATE INJ SUSP, USP [Suspect]
     Active Substance: BETAMETHASONE ACETATE\BETAMETHASONE SODIUM PHOSPHATE
     Dosage: 12 MG
     Route: 065
     Dates: start: 20160501, end: 20160501

REACTIONS (3)
  - Rash erythematous [Unknown]
  - Exposure during pregnancy [Unknown]
  - Burning sensation [Unknown]

NARRATIVE: CASE EVENT DATE: 20160502
